FAERS Safety Report 8100113-7 (Version None)
Quarter: 2012Q1

REPORT INFORMATION
  Report Type: 
  Country: None (occurrence: None)
  Receive Date: 20120129
  Receipt Date: 20111129
  Transmission Date: 20120608
  Serious: No
  Sender: FDA-Public Use
  Company Number: US-ABBOTT-11P-163-0878977-00

PATIENT
  Age: 76 Year
  Sex: Female

DRUGS (7)
  1. ASCORBIC ACID [Concomitant]
     Indication: PRODUCT USED FOR UNKNOWN INDICATION
  2. OXYCODONE HCL [Concomitant]
     Indication: PAIN
     Dosage: AT NIGHT AND PRN DURING THE DAYTIME
     Route: 048
  3. MULTI-VITAMIN [Concomitant]
     Indication: PRODUCT USED FOR UNKNOWN INDICATION
     Dosage: SUPPLEMENTS
  4. HUMIRA [Suspect]
     Indication: CROHN'S DISEASE
     Dates: start: 20110401
  5. CALCIUM [Concomitant]
     Indication: PRODUCT USED FOR UNKNOWN INDICATION
     Route: 048
  6. LIPITOR [Concomitant]
     Indication: BLOOD CHOLESTEROL INCREASED
     Dosage: AT BEDTIME
     Route: 048
  7. NEXIUM [Concomitant]
     Indication: GASTROOESOPHAGEAL REFLUX DISEASE
     Route: 048

REACTIONS (8)
  - FATIGUE [None]
  - INCREASED APPETITE [None]
  - WEIGHT INCREASED [None]
  - NASAL CONGESTION [None]
  - THERAPEUTIC RESPONSE UNEXPECTED [None]
  - NASOPHARYNGITIS [None]
  - ORAL HERPES [None]
  - INCREASED UPPER AIRWAY SECRETION [None]
